FAERS Safety Report 13902882 (Version 1)
Quarter: 2017Q3

REPORT INFORMATION
  Report Type: Spontaneous
  Country: CZ (occurrence: CZ)
  Receive Date: 20170824
  Receipt Date: 20170824
  Transmission Date: 20171127
  Serious: Yes (Death, Hospitalization)
  Sender: FDA-Public Use
  Company Number: CZ-FRESENIUS KABI-FK201707099

PATIENT
  Age: 48 Year
  Sex: Female

DRUGS (2)
  1. CISPLATIN (MANUFACTURER UNKNOWN) [Suspect]
     Active Substance: CISPLATIN
     Indication: BONE CANCER
     Route: 065
     Dates: start: 20170707, end: 20170707
  2. FLUOROURACIL. [Suspect]
     Active Substance: FLUOROURACIL
     Indication: BONE CANCER
     Route: 065
     Dates: start: 20170707, end: 20170707

REACTIONS (10)
  - Blood pressure immeasurable [Unknown]
  - Haematotoxicity [Fatal]
  - Sepsis [Unknown]
  - Tachycardia [Unknown]
  - Petechiae [Unknown]
  - Hypoxia [Unknown]
  - Oliguria [Unknown]
  - Ileus paralytic [Unknown]
  - Hypotension [Unknown]
  - Pyrexia [Unknown]

NARRATIVE: CASE EVENT DATE: 20170714
